FAERS Safety Report 7284299-2 (Version None)
Quarter: 2011Q1

REPORT INFORMATION
  Report Type: 
  Country: None (occurrence: None)
  Receive Date: 20110209
  Receipt Date: 20110121
  Transmission Date: 20110831
  Serious: No
  Sender: FDA-Public Use
  Company Number: US-B.I. PHARMACEUTICALS,INC./RIDGEFIELD-2011-BP-02230BP

PATIENT
  Sex: Male

DRUGS (6)
  1. NEXIUM [Concomitant]
     Indication: GASTROOESOPHAGEAL REFLUX DISEASE
     Route: 048
  2. COSOPT [Concomitant]
     Indication: GLAUCOMA
     Route: 031
  3. MICARDIS [Suspect]
     Indication: HYPERTENSION
     Route: 048
  4. SPIRIVA [Suspect]
     Indication: CHRONIC OBSTRUCTIVE PULMONARY DISEASE
     Dates: start: 20101231
  5. XALATAN [Concomitant]
     Indication: GLAUCOMA
     Route: 031
  6. LIPITOR [Concomitant]
     Indication: BLOOD CHOLESTEROL INCREASED
     Route: 048

REACTIONS (3)
  - COUGH [None]
  - WHEEZING [None]
  - RHINORRHOEA [None]
